FAERS Safety Report 8131688-X (Version None)
Quarter: 2012Q1

REPORT INFORMATION
  Report Type: 
  Country: None (occurrence: None)
  Receive Date: 20120207
  Receipt Date: 20120125
  Transmission Date: 20120608
  Serious: Yes (Hospitalization)
  Sender: FDA-Public Use
  Company Number: 1178140

PATIENT
  Age: 68 Year
  Sex: Male

DRUGS (6)
  1. ENTACAPONE [Concomitant]
  2. THERAPEUTIC RADIOPHARMACUETICALS [Concomitant]
  3. CARBIDOPA AND LEVODOPA [Concomitant]
  4. CARBOPLATIN [Concomitant]
  5. PRAMIPEXOLE DIHYCHLLORIDE [Suspect]
     Indication: PARKINSON'S DISEASE
  6. PACLITAXEL [Suspect]
     Indication: SQUAMOUS CELL CARCINOMA
     Dosage: 45 MG/M^2

REACTIONS (7)
  - ABNORMAL DREAMS [None]
  - MUSCULOSKELETAL STIFFNESS [None]
  - DRUG INTERACTION [None]
  - CONFUSIONAL STATE [None]
  - TREMOR [None]
  - MENTAL STATUS CHANGES [None]
  - HALLUCINATION, VISUAL [None]
